FAERS Safety Report 8376469-7 (Version None)
Quarter: 2012Q2

REPORT INFORMATION
  Report Type: 
  Country: None (occurrence: None)
  Receive Date: 20120517
  Receipt Date: 20120423
  Transmission Date: 20120825
  Serious: Yes (Life-Threatening, Hospitalization, Other)
  Sender: FDA-Public Use
  Company Number: 001211569A

PATIENT
  Sex: Female

DRUGS (1)
  1. PROACTIV 30 DAY KIT [Suspect]
     Indication: ACNE
     Dosage: ONCE DAILY DERMAL
     Route: 062
     Dates: start: 20120404

REACTIONS (1)
  - DRUG HYPERSENSITIVITY [None]
